FAERS Safety Report 22222483 (Version 1)
Quarter: 2023Q2

REPORT INFORMATION
  Report Type: Spontaneous
  Country: US (occurrence: US)
  Receive Date: 20230418
  Receipt Date: 20230418
  Transmission Date: 20230721
  Serious: Yes (Life-Threatening, Other)
  Sender: FDA-Public Use
  Company Number: US-SUN PHARMACEUTICAL INDUSTRIES LTD-2023R1-384788

PATIENT
  Age: 37 Year
  Sex: Male

DRUGS (2)
  1. BACLOFEN [Interacting]
     Active Substance: BACLOFEN
     Indication: Muscle spasticity
     Dosage: UNK, EVERY 10 WEEKS
     Route: 037
  2. BACLOFEN [Interacting]
     Active Substance: BACLOFEN
     Dosage: 940 MICROGRAM, DAILY
     Route: 037

REACTIONS (7)
  - Drug withdrawal syndrome [Recovered/Resolved]
  - Drug-device interaction [Unknown]
  - Condition aggravated [Unknown]
  - Device malfunction [Unknown]
  - Poor quality sleep [Recovered/Resolved]
  - Pruritus [Recovered/Resolved]
  - Flushing [Recovered/Resolved]
